FAERS Safety Report 9787015 (Version 4)
Quarter: 2015Q1

REPORT INFORMATION
  Report Type: Spontaneous
  Country: CH (occurrence: CH)
  Receive Date: 20131227
  Receipt Date: 20150213
  Transmission Date: 20150721
  Serious: Yes (Hospitalization, Other)
  Sender: FDA-Public Use
  Company Number: PHHY2013CH105105

PATIENT
  Age: 5 Year
  Sex: Male

DRUGS (2)
  1. DICLOFENAC [Suspect]
     Active Substance: DICLOFENAC
     Indication: VARICELLA
     Route: 065
  2. CALAMINE [Concomitant]
     Active Substance: CALAMINE\FERRIC OXIDE RED\ZINC OXIDE
     Indication: VARICELLA
     Route: 061

REACTIONS (12)
  - White blood cell count decreased [Unknown]
  - Alanine aminotransferase increased [Unknown]
  - Induration [Recovered/Resolved]
  - Hyperaemia [Recovered/Resolved]
  - C-reactive protein increased [Unknown]
  - Aspartate aminotransferase increased [Unknown]
  - Dermatitis [Recovered/Resolved]
  - Product use issue [Unknown]
  - Soft tissue inflammation [Recovered/Resolved]
  - Swelling [Recovered/Resolved]
  - Pain of skin [Recovered/Resolved]
  - Hyperthermia [Recovered/Resolved]
